FAERS Safety Report 9915947 (Version 1)
Quarter: 2014Q1

REPORT INFORMATION
  Report Type: Spontaneous
  Country: US (occurrence: None)
  Receive Date: 20140219
  Receipt Date: 20140219
  Transmission Date: 20141002
  Serious: Yes (Disabling, Other)
  Sender: FDA-Public Use
  Company Number: None

PATIENT
  Age: 55 Year
  Sex: Female
  Weight: 99.79 kg

DRUGS (1)
  1. AVASTIN [Suspect]
     Indication: RETINAL NEOVASCULARISATION
     Dosage: 6 WEEKS, INTO THE EYE
     Route: 047
     Dates: start: 20121228, end: 20140216

REACTIONS (8)
  - Vision blurred [None]
  - Retinal tear [None]
  - Pain [None]
  - Burning sensation [None]
  - Rash macular [None]
  - Unevaluable event [None]
  - Colour blindness acquired [None]
  - Metamorphopsia [None]
